FAERS Safety Report 5919136-9 (Version None)
Quarter: 2008Q3

REPORT INFORMATION
  Report Type: 
  Country: None (occurrence: None)
  Receive Date: 20080909
  Receipt Date: 20070122
  Transmission Date: 20090109
  Serious: Yes (Death, Hospitalization, Other)
  Sender: FDA-Public Use
  Company Number: 163-20785-07011115

PATIENT
  Age: 65 Year
  Sex: Female

DRUGS (32)
  1. THALOMID [Suspect]
     Indication: MULTIPLE MYELOMA
     Dosage: 200 MG, QD, ORAL ; 50 MG, QD, ORAL ; 200 MG, QD, ORAL
     Route: 048
     Dates: start: 20060326, end: 20060329
  2. THALOMID [Suspect]
     Indication: MULTIPLE MYELOMA
     Dosage: 200 MG, QD, ORAL ; 50 MG, QD, ORAL ; 200 MG, QD, ORAL
     Route: 048
     Dates: start: 20060426, end: 20060502
  3. THALOMID [Suspect]
     Indication: MULTIPLE MYELOMA
     Dosage: 200 MG, QD, ORAL ; 50 MG, QD, ORAL ; 200 MG, QD, ORAL
     Route: 048
     Dates: start: 20060510, end: 20060513
  4. MELPHALAN [Suspect]
     Indication: MULTIPLE MYELOMA
     Dosage: 350 MG, INTRAVENOUS
     Route: 042
     Dates: start: 20060622
  5. DEXAMETHASONE [Suspect]
     Indication: MULTIPLE MYELOMA
     Dosage: 40 MG ; 20 MG ; 40 MG
     Dates: start: 20060326, end: 20060329
  6. DEXAMETHASONE [Suspect]
     Indication: MULTIPLE MYELOMA
     Dosage: 40 MG ; 20 MG ; 40 MG
     Dates: start: 20060426, end: 20060429
  7. DEXAMETHASONE [Suspect]
     Indication: MULTIPLE MYELOMA
     Dosage: 40 MG ; 20 MG ; 40 MG
     Dates: start: 20060510, end: 20060513
  8. CISPLATIN [Suspect]
     Indication: MULTIPLE MYELOMA
     Dosage: 19 MG ; 18 MG
     Dates: start: 20060326, end: 20060329
  9. CISPLATIN [Suspect]
     Indication: MULTIPLE MYELOMA
     Dosage: 19 MG ; 18 MG
     Dates: start: 20060512, end: 20060513
  10. ADRIAMYCIN PFS [Suspect]
     Indication: MULTIPLE MYELOMA
     Dosage: 19 MG ; 18 MG
     Dates: start: 20060326, end: 20060329
  11. ADRIAMYCIN PFS [Suspect]
     Indication: MULTIPLE MYELOMA
     Dosage: 19 MG ; 18 MG
     Dates: start: 20060510, end: 20060513
  12. CYCLOPHOSPHAMIDE [Suspect]
     Dosage: 744 MG ; 720 MG
     Dates: start: 20060326, end: 20060329
  13. CYCLOPHOSPHAMIDE [Suspect]
     Dosage: 744 MG ; 720 MG
     Dates: start: 20060510, end: 20060513
  14. ETOPOSIDE [Suspect]
     Indication: MULTIPLE MYELOMA
     Dosage: 74 MG ; 72 MG
     Dates: start: 20060326, end: 20060329
  15. ETOPOSIDE [Suspect]
     Indication: MULTIPLE MYELOMA
     Dosage: 74 MG ; 72 MG
     Dates: start: 20060510, end: 20060513
  16. VELCADE [Suspect]
     Indication: MULTIPLE MYELOMA
     Dosage: SEE IMAGE
     Dates: start: 20050323, end: 20060323
  17. VELCADE [Suspect]
     Indication: MULTIPLE MYELOMA
     Dosage: SEE IMAGE
     Dates: start: 20060326, end: 20060326
  18. VELCADE [Suspect]
     Indication: MULTIPLE MYELOMA
     Dosage: SEE IMAGE
     Dates: start: 20060330, end: 20060330
  19. VELCADE [Suspect]
     Indication: MULTIPLE MYELOMA
     Dosage: SEE IMAGE
     Dates: start: 20060402, end: 20060402
  20. VELCADE [Suspect]
     Indication: MULTIPLE MYELOMA
     Dosage: SEE IMAGE
     Dates: start: 20060510, end: 20060510
  21. VELCADE [Suspect]
     Indication: MULTIPLE MYELOMA
     Dosage: SEE IMAGE
     Dates: start: 20060513, end: 20060513
  22. VELCADE [Suspect]
     Indication: MULTIPLE MYELOMA
     Dosage: SEE IMAGE
     Dates: start: 20060517, end: 20060517
  23. VELCADE [Suspect]
     Indication: MULTIPLE MYELOMA
     Dosage: SEE IMAGE
     Dates: start: 20060520, end: 20060520
  24. MALARONE [Suspect]
     Indication: DRUG USE FOR UNKNOWN INDICATION
  25. RANITIDINE [Suspect]
     Indication: DRUG USE FOR UNKNOWN INDICATION
  26. MULTI-VITAMIN [Suspect]
     Indication: DRUG USE FOR UNKNOWN INDICATION
  27. PROCRIT [Suspect]
     Indication: DRUG USE FOR UNKNOWN INDICATION
  28. MAGNESIUM OXIDE [Suspect]
     Indication: DRUG USE FOR UNKNOWN INDICATION
  29. ATIVAN [Suspect]
     Indication: DRUG USE FOR UNKNOWN INDICATION
  30. HYDROCODONE [Suspect]
     Indication: DRUG USE FOR UNKNOWN INDICATION
  31. ACETAMINOPHEN [Suspect]
     Indication: DRUG USE FOR UNKNOWN INDICATION
  32. ZOFRAN [Suspect]
     Indication: DRUG USE FOR UNKNOWN INDICATION

REACTIONS (10)
  - BRADYCARDIA [None]
  - CARDIAC ARREST [None]
  - CARDIOPULMONARY FAILURE [None]
  - HYPOTENSION [None]
  - HYPOXIA [None]
  - PNEUMONIA [None]
  - PNEUMOTHORAX [None]
  - PYREXIA [None]
  - SEPSIS [None]
  - SINUS TACHYCARDIA [None]
